FAERS Safety Report 5742838-4 (Version None)
Quarter: 2008Q2

REPORT INFORMATION
  Report Type: 
  Country: None (occurrence: None)
  Receive Date: 20080519
  Receipt Date: 20080513
  Transmission Date: 20081010
  Serious: Yes (Hospitalization, Other)
  Sender: FDA-Public Use
  Company Number: CH-JNJFOC-20080502328

PATIENT
  Age: 73 Year
  Sex: Female

DRUGS (14)
  1. HALDOL [Suspect]
     Route: 048
  2. HALDOL [Suspect]
     Route: 048
  3. HALDOL [Suspect]
     Indication: DRUG USE FOR UNKNOWN INDICATION
     Route: 048
  4. DIPIPERON [Suspect]
     Indication: DRUG USE FOR UNKNOWN INDICATION
     Route: 048
  5. ARICEPT [Suspect]
     Indication: DRUG USE FOR UNKNOWN INDICATION
     Route: 048
  6. SEROQUEL [Suspect]
     Route: 048
  7. SEROQUEL [Suspect]
     Route: 048
  8. SEROQUEL [Suspect]
     Route: 048
  9. SEROQUEL [Suspect]
     Indication: DRUG USE FOR UNKNOWN INDICATION
     Route: 048
  10. LORAZEPAM [Suspect]
     Route: 048
  11. LORAZEPAM [Suspect]
     Route: 048
  12. LORAZEPAM [Suspect]
     Indication: DRUG USE FOR UNKNOWN INDICATION
     Route: 048
  13. ENTUMIN [Suspect]
     Indication: DRUG USE FOR UNKNOWN INDICATION
     Route: 048
  14. ZURCAL [Concomitant]
     Indication: GASTROINTESTINAL DISORDER
     Route: 048

REACTIONS (6)
  - DEHYDRATION [None]
  - HYPERCALCAEMIA [None]
  - HYPERNATRAEMIA [None]
  - HYPERPARATHYROIDISM [None]
  - HYPERTHYROIDISM [None]
  - SOMNOLENCE [None]
